FAERS Safety Report 7904736-7 (Version None)
Quarter: 2011Q4

REPORT INFORMATION
  Report Type: 
  Country: None (occurrence: None)
  Receive Date: 20111109
  Receipt Date: 20111102
  Transmission Date: 20120403
  Serious: Yes (Other)
  Sender: FDA-Public Use
  Company Number: JP-NOVOPROD-338677

PATIENT

DRUGS (1)
  1. VICTOZA [Suspect]
     Indication: DIABETES MELLITUS
     Dosage: 0.3 MG IN MORNING
     Route: 058
     Dates: start: 20111025, end: 20111028

REACTIONS (3)
  - HYPERGLYCAEMIC UNCONSCIOUSNESS [None]
  - DECREASED APPETITE [None]
  - MALAISE [None]
